FAERS Safety Report 24746994 (Version 1)
Quarter: 2024Q4

REPORT INFORMATION
  Report Type: Spontaneous
  Country: US (occurrence: US)
  Receive Date: 20241218
  Receipt Date: 20241218
  Transmission Date: 20250115
  Serious: No
  Sender: UROGEN PHARMA
  Company Number: US-UROGEN PHARMA LTD.-2024-UGN-000163

PATIENT

DRUGS (2)
  1. JELMYTO [Suspect]
     Active Substance: MITOMYCIN
     Indication: Ureteric cancer
     Dosage: 120 MILLIGRAM, BOTH KIDNEYS 60 MG PER KIDNEY (RETROGRADE INSTILLATION)
     Dates: start: 20241007, end: 20241007
  2. JELMYTO [Suspect]
     Active Substance: MITOMYCIN
     Dosage: 120 MILLIGRAM, BOTH KIDNEYS 60 MG PER KIDNEY (RETROGRADE INSTILLATION)
     Dates: start: 20241024, end: 20241024

REACTIONS (1)
  - Rash [Unknown]

NARRATIVE: CASE EVENT DATE: 20241001
